FAERS Safety Report 23687300 (Version 2)
Quarter: 2024Q2

REPORT INFORMATION
  Report Type: Report from Study
  Country: US (occurrence: US)
  Receive Date: 20240329
  Receipt Date: 20240516
  Transmission Date: 20240716
  Serious: Yes (Death)
  Sender: FDA-Public Use
  Company Number: US-BAYER-2024A047001

PATIENT
  Age: 64 Year
  Sex: Female
  Weight: 67.12 kg

DRUGS (17)
  1. ADEMPAS [Suspect]
     Active Substance: RIOCIGUAT
     Indication: Pulmonary arterial hypertension
     Dosage: UNK
     Dates: start: 20230725
  2. ADEMPAS [Suspect]
     Active Substance: RIOCIGUAT
     Indication: Pulmonary arterial hypertension
     Dosage: 2.0 MG, TID
     Route: 048
  3. FISH OIL [Concomitant]
     Active Substance: FISH OIL
  4. VITAMIN D3 [Concomitant]
     Active Substance: CHOLECALCIFEROL
  5. CANRENOATE POTASSIUM [Concomitant]
     Active Substance: CANRENOATE POTASSIUM
  6. SANDOSTATIN [Concomitant]
     Active Substance: OCTREOTIDE ACETATE
  7. POTASSIUM CHLORIDE [Concomitant]
     Active Substance: POTASSIUM CHLORIDE
  8. OPSUMIT [Concomitant]
     Active Substance: MACITENTAN
  9. ESOMEPRAZOLE [Concomitant]
     Active Substance: ESOMEPRAZOLE
  10. LINZESS [Concomitant]
     Active Substance: LINACLOTIDE
  11. VITAMINS [Concomitant]
     Active Substance: VITAMINS
  12. REMODULIN [Concomitant]
     Active Substance: TREPROSTINIL
  13. VENFER Z [Concomitant]
  14. PEPPERMINT OIL [Concomitant]
     Active Substance: PEPPERMINT OIL
  15. FUROSEMIDE [Concomitant]
     Active Substance: FUROSEMIDE
  16. LYRICA [Concomitant]
     Active Substance: PREGABALIN
  17. ZOFRAN [Concomitant]
     Active Substance: ONDANSETRON HYDROCHLORIDE

REACTIONS (1)
  - Death [Fatal]

NARRATIVE: CASE EVENT DATE: 20240318
